FAERS Safety Report 4835417-4 (Version None)
Quarter: 2005Q4

REPORT INFORMATION
  Report Type: 
  Country: None (occurrence: None)
  Receive Date: 20051117
  Receipt Date: 20051109
  Transmission Date: 20060501
  Serious: Yes (Other)
  Sender: FDA-Public Use
  Company Number: 200512069BWH

PATIENT
  Age: 59 Year
  Sex: Female
  Weight: 77.1115 kg

DRUGS (2)
  1. AVELOX [Suspect]
     Indication: SINUSITIS
     Dosage: 400 MG, TOTAL DAILY, ORAL
     Route: 048
     Dates: start: 20031107, end: 20031111
  2. DIABETIC ORAL MEDICATION [Concomitant]

REACTIONS (7)
  - AMNESIA [None]
  - DIZZINESS [None]
  - FALL [None]
  - FOOT FRACTURE [None]
  - HEADACHE [None]
  - NAUSEA [None]
  - VERTIGO [None]
